FAERS Safety Report 6829698-5 (Version None)
Quarter: 2010Q3

REPORT INFORMATION
  Report Type: 
  Country: None (occurrence: None)
  Receive Date: 20100706
  Receipt Date: 20100625
  Transmission Date: 20110219
  Serious: Yes (Life-Threatening, Hospitalization)
  Sender: FDA-Public Use
  Company Number: 102030

PATIENT
  Age: 52 Year
  Sex: Female

DRUGS (1)
  1. CISPLATIN [Suspect]
     Indication: HEAD AND NECK CANCER
     Dosage: 129MG
     Dates: start: 20100216

REACTIONS (2)
  - DEPRESSED LEVEL OF CONSCIOUSNESS [None]
  - RESPIRATORY DISTRESS [None]
